FAERS Safety Report 25394957 (Version 2)
Quarter: 2025Q2

REPORT INFORMATION
  Report Type: Report from Study
  Country: US (occurrence: US)
  Receive Date: 20250604
  Receipt Date: 20250618
  Transmission Date: 20250717
  Serious: Yes (Hospitalization, Other)
  Sender: BAYER HEALTHCARE LLC
  Company Number: US-BAYER-2025A039836

PATIENT
  Age: 52 Year
  Sex: Female
  Weight: 82.54 kg

DRUGS (29)
  1. ADEMPAS [Suspect]
     Active Substance: RIOCIGUAT
     Indication: Pulmonary arterial hypertension
     Route: 048
     Dates: start: 20210415
  2. ADEMPAS [Suspect]
     Active Substance: RIOCIGUAT
     Indication: Pulmonary arterial hypertension
     Dosage: 2.5 MG, TID
     Route: 048
  3. ADEMPAS [Suspect]
     Active Substance: RIOCIGUAT
     Indication: Pulmonary arterial hypertension
     Dosage: 1.5 MG, TID
     Route: 048
  4. ADEMPAS [Suspect]
     Active Substance: RIOCIGUAT
     Indication: Pulmonary arterial hypertension
     Dosage: 2.0 MG, TID
     Route: 048
  5. ADEMPAS [Suspect]
     Active Substance: RIOCIGUAT
     Indication: Pulmonary arterial hypertension
     Dosage: 1.5 MG, TID
  6. WINREVAIR [Suspect]
     Active Substance: SOTATERCEPT-CSRK
  7. REMODULIN [Suspect]
     Active Substance: TREPROSTINIL
     Indication: Pulmonary arterial hypertension
     Route: 042
     Dates: start: 20210721, end: 20250329
  8. LASIX [Suspect]
     Active Substance: FUROSEMIDE
  9. NAPROXEN SODIUM [Suspect]
     Active Substance: NAPROXEN SODIUM
  10. VITAMIN B12 [Concomitant]
     Active Substance: CYANOCOBALAMIN
  11. KLOR-CON [Concomitant]
     Active Substance: POTASSIUM CHLORIDE
  12. ALBUTEROL\IPRATROPIUM [Concomitant]
     Active Substance: ALBUTEROL\IPRATROPIUM
  13. ALBUTEROL SULFATE [Concomitant]
     Active Substance: ALBUTEROL SULFATE
  14. FLUTICASONE PROPIONATE [Concomitant]
     Active Substance: FLUTICASONE PROPIONATE
  15. SODIUM CHLORIDE [Concomitant]
     Active Substance: SODIUM CHLORIDE
  16. VITAMIN E [Concomitant]
     Active Substance: .ALPHA.-TOCOPHEROL
  17. FLONASE ALLERGY RELIEF [Concomitant]
     Active Substance: FLUTICASONE PROPIONATE
  18. VITAMIN B3 [Concomitant]
     Active Substance: NIACIN
  19. LEVOTHYROXINE SODIUM [Concomitant]
     Active Substance: LEVOTHYROXINE SODIUM
  20. VENTOLIN HFA [Concomitant]
     Active Substance: ALBUTEROL SULFATE
  21. ASPIRIN [Concomitant]
     Active Substance: ASPIRIN
  22. MIDODRINE HYDROCHLORIDE [Concomitant]
     Active Substance: MIDODRINE HYDROCHLORIDE
  23. POLYETHYLENE GLYCOL [Concomitant]
     Active Substance: POLYETHYLENE GLYCOL
  24. FUROSEMIDE [Concomitant]
     Active Substance: FUROSEMIDE
  25. DIPHENHYDRAMINE HYDROCHLORIDE [Concomitant]
     Active Substance: DIPHENHYDRAMINE HYDROCHLORIDE
  26. AMBRISENTAN [Concomitant]
     Active Substance: AMBRISENTAN
  27. POTASSIUM CHLORIDE [Concomitant]
     Active Substance: POTASSIUM CHLORIDE
  28. COLCHICINE [Concomitant]
     Active Substance: COLCHICINE
  29. ALLOPURINOL [Concomitant]
     Active Substance: ALLOPURINOL

REACTIONS (24)
  - Haematemesis [None]
  - Ulcer haemorrhage [None]
  - Catheter site infection [None]
  - Loss of consciousness [Recovered/Resolved]
  - Nausea [None]
  - Dizziness [None]
  - Loss of consciousness [None]
  - Pancreatic cyst [None]
  - Syncope [None]
  - Haematemesis [None]
  - Ulcer haemorrhage [None]
  - Injection site haemorrhage [None]
  - Injection site bruising [None]
  - Blood pressure decreased [None]
  - Anaemia [Not Recovered/Not Resolved]
  - Gout [None]
  - Hypotension [Not Recovered/Not Resolved]
  - Blood pressure decreased [None]
  - Fatigue [None]
  - Dizziness [None]
  - Blood pressure systolic decreased [None]
  - Nausea [None]
  - Headache [None]
  - Injection site haemorrhage [None]

NARRATIVE: CASE EVENT DATE: 20250101
